FAERS Safety Report 15499444 (Version 1)
Quarter: 2018Q4

REPORT INFORMATION
  Report Type: Spontaneous
  Country: AM (occurrence: AM)
  Receive Date: 20181015
  Receipt Date: 20181015
  Transmission Date: 20190205
  Serious: Yes (Other)
  Sender: FDA-Public Use
  Company Number: AM-PFIZER INC-2018414994

PATIENT
  Age: 40 Year
  Sex: Male

DRUGS (7)
  1. DELAMANID [Suspect]
     Active Substance: DELAMANID
     Indication: PULMONARY TUBERCULOSIS
     Dosage: UNK(200), UNK
     Dates: start: 20170427, end: 20180504
  2. PYRIDOXINE [Concomitant]
     Active Substance: PYRIDOXINE
     Dosage: UNK
  3. CLOFAZIMINE [Suspect]
     Active Substance: CLOFAZIMINE
     Indication: PULMONARY TUBERCULOSIS
     Dosage: UNK (200/100), UNK
     Dates: start: 20170427, end: 20180710
  4. LINEZOLID. [Suspect]
     Active Substance: LINEZOLID
     Indication: PULMONARY TUBERCULOSIS
     Dosage: UNK(600), UNK
     Dates: start: 20170427
  5. CYCLOSERINE. [Suspect]
     Active Substance: CYCLOSERINE
     Indication: PULMONARY TUBERCULOSIS
     Dosage: UNK (750), UNK
     Dates: start: 20170427
  6. LEVOFLOXACIN. [Suspect]
     Active Substance: LEVOFLOXACIN
     Indication: PULMONARY TUBERCULOSIS
     Dosage: UNK (1000), UNK
     Dates: start: 20170427
  7. AFOBAZOL [Concomitant]
     Indication: INSOMNIA
     Dosage: UNK

REACTIONS (10)
  - Teratoma [Not Recovered/Not Resolved]
  - Vomiting [Unknown]
  - Fatigue [Unknown]
  - Mediastinal mass [Not Recovered/Not Resolved]
  - Incorrect product administration duration [Recovered/Resolved]
  - Emphysema [Unknown]
  - Haemoglobin decreased [Unknown]
  - Dysphonia [Unknown]
  - Nausea [Unknown]
  - Weight decreased [Unknown]

NARRATIVE: CASE EVENT DATE: 20170427
